FAERS Safety Report 13617742 (Version 1)
Quarter: 2017Q2

REPORT INFORMATION
  Report Type: Spontaneous
  Country: US (occurrence: US)
  Receive Date: 20170606
  Receipt Date: 20170606
  Transmission Date: 20170830
  Serious: Yes (Other)
  Sender: FDA-Public Use
  Company Number: US-SA-2017SA018603

PATIENT
  Sex: Male

DRUGS (6)
  1. VICTOZA [Suspect]
     Active Substance: LIRAGLUTIDE
     Route: 065
     Dates: start: 20161201, end: 20161201
  2. VICTOZA [Suspect]
     Active Substance: LIRAGLUTIDE
     Dosage: STRENGTH: 6MG/ML
     Route: 058
     Dates: start: 201611, end: 20161130
  3. FLEXPEN [Concomitant]
     Active Substance: UNSPECIFIED INGREDIENT
  4. FLEXPEN [Concomitant]
     Active Substance: UNSPECIFIED INGREDIENT
  5. LANTUS [Suspect]
     Active Substance: INSULIN GLARGINE
     Dosage: DOSE:20 UNIT(S)
     Route: 065
  6. VICTOZA [Suspect]
     Active Substance: LIRAGLUTIDE
     Route: 058
     Dates: start: 20161202

REACTIONS (1)
  - Loss of consciousness [Recovered/Resolved]

NARRATIVE: CASE EVENT DATE: 2016
